FAERS Safety Report 4372618-6 (Version None)
Quarter: 2004Q2

REPORT INFORMATION
  Report Type: 
  Country: None (occurrence: None)
  Receive Date: 20040526
  Receipt Date: 20040514
  Transmission Date: 20050107
  Serious: Yes (Hospitalization)
  Sender: FDA-Public Use
  Company Number: 04P-056-0261083-00

PATIENT
  Age: 47 Year
  Sex: Male

DRUGS (9)
  1. DEPAKOTE [Suspect]
     Dosage: 500 MG, 2 IN 1 D, PER ORAL
     Route: 048
     Dates: start: 20040227, end: 20040328
  2. MEPROBAMATE [Suspect]
     Dosage: 250 MG, 4 IN 1 D, PER ORAL/DOSE INCREASED
     Route: 048
     Dates: start: 20040322, end: 20040326
  3. MEPROBAMATE [Suspect]
     Dosage: 250 MG, 4 IN 1 D, PER ORAL/DOSE INCREASED
     Route: 048
     Dates: start: 20040326, end: 20040327
  4. AMITRIPTYLINE HYDROCHLORIDE [Suspect]
     Dosage: 50 MG, 1 IN 1 D, PER ORAL
     Route: 048
     Dates: start: 20040314, end: 20040328
  5. HYDROXYZINE HCL [Suspect]
     Dosage: 400 MG, 1 IN 1 D, PER ORAL
     Route: 048
     Dates: start: 20040309, end: 20040328
  6. CLOMIPRAMINE HCL [Suspect]
     Dosage: SEE IMAGE PER ORAL
     Route: 048
     Dates: start: 20030615, end: 20040314
  7. CLOMIPRAMINE HCL [Suspect]
     Dosage: SEE IMAGE PER ORAL
     Route: 048
     Dates: start: 20040314, end: 20040328
  8. LOPRAZOLAM MESILATE [Concomitant]
  9. OXAZEPAM [Concomitant]

REACTIONS (12)
  - ACCOMMODATION DISORDER [None]
  - ANXIETY [None]
  - COGWHEEL RIGIDITY [None]
  - DEPRESSION [None]
  - DIFFICULTY IN WALKING [None]
  - DIZZINESS [None]
  - DRUG EFFECT DECREASED [None]
  - EXTRAPYRAMIDAL DISORDER [None]
  - HYPERHIDROSIS [None]
  - MUSCLE RIGIDITY [None]
  - TREMOR [None]
  - URINARY TRACT DISORDER [None]
